FAERS Safety Report 13251631 (Version 3)
Quarter: 2017Q1

REPORT INFORMATION
  Report Type: Spontaneous
  Country: US (occurrence: US)
  Receive Date: 20170220
  Receipt Date: 20170330
  Transmission Date: 20170428
  Serious: Yes (Other)
  Sender: FDA-Public Use
  Company Number: US-009507513-1702USA006217

PATIENT
  Sex: Female

DRUGS (3)
  1. TRAZODONE HYDROCHLORIDE. [Concomitant]
     Active Substance: TRAZODONE HYDROCHLORIDE
  2. PROVENTIL [Suspect]
     Active Substance: ALBUTEROL
     Dosage: ONE INHALATION EVERY 4 TO 6 HOURS
     Route: 055
     Dates: start: 201612
  3. PROVENTIL [Suspect]
     Active Substance: ALBUTEROL
     Indication: CHRONIC OBSTRUCTIVE PULMONARY DISEASE
     Dosage: ONE INHALATION EVERY 4 TO 6 HOURS
     Route: 055
     Dates: start: 2010, end: 2016

REACTIONS (5)
  - Cataract [Recovered/Resolved]
  - Incorrect dose administered [Unknown]
  - Dyspepsia [Recovered/Resolved]
  - Drug dose omission [Unknown]
  - Product quality issue [Unknown]
